FAERS Safety Report 15140133 (Version 2)
Quarter: 2018Q3

REPORT INFORMATION
  Report Type: Spontaneous
  Country: MX (occurrence: MX)
  Receive Date: 20180713
  Receipt Date: 20180713
  Transmission Date: 20181010
  Serious: Yes (Death, Other)
  Sender: FDA-Public Use
  Company Number: MX-009507513-1807MEX005753

PATIENT
  Sex: Female

DRUGS (1)
  1. IMPLANON [Suspect]
     Active Substance: ETONOGESTREL
     Dosage: 68 MG, UNK
     Route: 059
     Dates: start: 2017, end: 2017

REACTIONS (1)
  - Hypovolaemic shock [Fatal]

NARRATIVE: CASE EVENT DATE: 2017
